FAERS Safety Report 19309544 (Version 1)
Quarter: 2021Q2

REPORT INFORMATION
  Report Type: Spontaneous
  Country: DE (occurrence: DE)
  Receive Date: 20210526
  Receipt Date: 20210526
  Transmission Date: 20210717
  Serious: Yes (Hospitalization, Other)
  Sender: FDA-Public Use
  Company Number: DE-ORGANON-O2105DEU001954

PATIENT
  Age: 26 Year
  Sex: Female

DRUGS (5)
  1. PUREGON (FOLLITROPIN BETA) [Suspect]
     Active Substance: FOLLITROPIN BETA
     Dosage: 133 INTERNATIONAL UNIT, QD
     Dates: start: 20210401, end: 20210406
  2. ORGALUTRAN [Suspect]
     Active Substance: GANIRELIX ACETATE
     Indication: ASSISTED REPRODUCTIVE TECHNOLOGY
     Dosage: 0.25 MILLIGRAM, QD
     Dates: start: 20210401, end: 20210406
  3. PUREGON (FOLLITROPIN BETA) [Suspect]
     Active Substance: FOLLITROPIN BETA
     Indication: ASSISTED REPRODUCTIVE TECHNOLOGY
     Dosage: 150 INTERNATIONAL UNIT, QD
     Dates: start: 20210325, end: 20210331
  4. PROLUTEX [Suspect]
     Active Substance: PROGESTERONE
     Indication: ASSISTED REPRODUCTIVE TECHNOLOGY
     Dosage: 75 MILLIGRAM, QD
     Dates: start: 20210410, end: 20210426
  5. OVITRELLE [Suspect]
     Active Substance: CHORIOGONADOTROPIN ALFA
     Indication: ASSISTED REPRODUCTIVE TECHNOLOGY
     Dosage: 250 MICROGRAM, FREQUENCY REPORTED AS TOTAL.
     Dates: start: 20210407

REACTIONS (1)
  - Uterine abscess [Recovered/Resolved]

NARRATIVE: CASE EVENT DATE: 20210412
